FAERS Safety Report 6834080-0 (Version None)
Quarter: 2010Q3

REPORT INFORMATION
  Report Type: 
  Country: None (occurrence: None)
  Receive Date: 20100712
  Receipt Date: 20070409
  Transmission Date: 20110219
  Serious: No
  Sender: FDA-Public Use
  Company Number: US-PFIZER INC-2007029076

PATIENT
  Sex: Female
  Weight: 52.16 kg

DRUGS (5)
  1. CHANTIX [Suspect]
     Indication: SMOKING CESSATION THERAPY
     Dates: start: 20070407
  2. SYNTHROID [Concomitant]
  3. METHOTREXATE [Concomitant]
  4. FOLIC ACID [Concomitant]
  5. CELEXA [Concomitant]

REACTIONS (3)
  - ANXIETY [None]
  - CONSTIPATION [None]
  - INSOMNIA [None]
